FAERS Safety Report 10307332 (Version 1)
Quarter: 2014Q3

REPORT INFORMATION
  Report Type: Spontaneous
  Country: DE (occurrence: DE)
  Receive Date: 20140716
  Receipt Date: 20140716
  Transmission Date: 20150326
  Serious: Yes (Hospitalization)
  Sender: FDA-Public Use
  Company Number: GXKR2014DE002564

PATIENT
  Sex: Female

DRUGS (2)
  1. DONEURIN [Suspect]
     Active Substance: DOXEPIN HYDROCHLORIDE
     Indication: ANXIETY DISORDER
     Dosage: 100 MG, QID
     Route: 048
  2. APONAL [Suspect]
     Active Substance: DOXEPIN HYDROCHLORIDE
     Dosage: 100 MG, 7QD
     Route: 048

REACTIONS (4)
  - Product substitution issue [Unknown]
  - Accidental overdose [Unknown]
  - Drug dependence [Unknown]
  - Fatigue [Unknown]
